FAERS Safety Report 7829296-0 (Version None)
Quarter: 2011Q4

REPORT INFORMATION
  Report Type: 
  Country: None (occurrence: None)
  Receive Date: 20111020
  Receipt Date: 20111013
  Transmission Date: 20120403
  Serious: Yes (Hospitalization, Other)
  Sender: FDA-Public Use
  Company Number: US-CELGENEUS-163-21880-11101558

PATIENT
  Sex: Female
  Weight: 54.026 kg

DRUGS (10)
  1. FLUDROCORTISONE ACETATE [Concomitant]
     Route: 065
  2. XANAX [Concomitant]
     Route: 065
  3. ZOLOFT [Concomitant]
     Route: 065
  4. LISINOPRIL [Concomitant]
     Route: 065
  5. REVLIMID [Suspect]
     Dosage: 25 MILLIGRAM
     Route: 048
     Dates: start: 20110901
  6. ASPIRIN [Concomitant]
     Route: 065
  7. DEXAMETHASONE [Concomitant]
     Route: 065
  8. REVLIMID [Suspect]
     Indication: MULTIPLE MYELOMA
     Dosage: 15 MILLIGRAM
     Route: 048
     Dates: start: 20090801
  9. AMBIEN [Concomitant]
     Route: 065
  10. VALTREX [Concomitant]
     Route: 065

REACTIONS (5)
  - RIB FRACTURE [None]
  - BLOOD CALCIUM DECREASED [None]
  - BLOOD POTASSIUM DECREASED [None]
  - MITRAL VALVE PROLAPSE [None]
  - FALL [None]
